FAERS Safety Report 19026389 (Version 2)
Quarter: 2021Q2

REPORT INFORMATION
  Report Type: Report from Study
  Country: IL (occurrence: IL)
  Receive Date: 20210318
  Receipt Date: 20210426
  Transmission Date: 20210717
  Serious: Yes (Death, Hospitalization)
  Sender: FDA-Public Use
  Company Number: IL-EISAI MEDICAL RESEARCH-EC-2020-082278

PATIENT
  Age: 59 Year
  Sex: Male
  Weight: 50.8 kg

DRUGS (18)
  1. LENVATINIB [Suspect]
     Active Substance: LENVATINIB
     Indication: NON-SMALL CELL LUNG CANCER METASTATIC
     Dosage: STARTING DOSE AT 20 MILLIGRAM, FLUCTUATED DOSAGE
     Route: 048
     Dates: start: 20200422, end: 20200715
  2. PROTEIN [Concomitant]
     Active Substance: PROTEIN
     Dosage: DISC
     Dates: start: 202003
  3. LAXADIN [Concomitant]
     Active Substance: BISACODYL
     Dates: start: 20200805
  4. PEMBROLIZUMAB. [Suspect]
     Active Substance: PEMBROLIZUMAB
     Route: 041
     Dates: start: 20200716, end: 20200716
  5. ZYPREXA [Concomitant]
     Active Substance: OLANZAPINE
     Dates: start: 202002
  6. CARBOHYDRATES [Concomitant]
     Active Substance: CARBOHYDRATES
     Dosage: DISC
     Dates: start: 20200425
  7. ZALDIAR [Concomitant]
     Active Substance: ACETAMINOPHEN\TRAMADOL HYDROCHLORIDE
     Dates: start: 202001
  8. OMEPRADEX [Concomitant]
     Active Substance: OMEPRAZOLE
     Dates: start: 20200506
  9. PEMBROLIZUMAB. [Suspect]
     Active Substance: PEMBROLIZUMAB
     Indication: NON-SMALL CELL LUNG CANCER METASTATIC
     Route: 041
     Dates: start: 20200422, end: 20200624
  10. ENSURE [Concomitant]
     Active Substance: AMINO ACIDS\DEXTROSE\ELECTROLYTES NOS\SOYBEAN OIL\VITAMINS
     Dates: start: 20200601
  11. FENTANYL. [Concomitant]
     Active Substance: FENTANYL
     Dates: start: 201801
  12. AVILAC [Concomitant]
     Dates: start: 20200805
  13. LENVATINIB [Suspect]
     Active Substance: LENVATINIB
     Route: 048
     Dates: start: 20200716, end: 20200804
  14. LENVATINIB [Suspect]
     Active Substance: LENVATINIB
     Route: 048
     Dates: start: 20201014
  15. PEMBROLIZUMAB. [Suspect]
     Active Substance: PEMBROLIZUMAB
     Route: 041
     Dates: start: 20201014
  16. ELTROXIN [Concomitant]
     Active Substance: LEVOTHYROXINE
     Dates: start: 20200625
  17. ETOPAN [Concomitant]
     Active Substance: ETODOLAC
     Dates: start: 20200805, end: 20200815
  18. CANNABIS SATIVA [Concomitant]
     Active Substance: CANNABIS SATIVA FLOWERING TOP
     Dates: start: 201701

REACTIONS (1)
  - Anal fissure [Recovered/Resolved]

NARRATIVE: CASE EVENT DATE: 20200812
